FAERS Safety Report 13497449 (Version 1)
Quarter: 2017Q2

REPORT INFORMATION
  Report Type: Report from Study
  Country: CA (occurrence: CA)
  Receive Date: 20170428
  Receipt Date: 20170428
  Transmission Date: 20170830
  Serious: Yes (Hospitalization)
  Sender: FDA-Public Use
  Company Number: CA-TESARO, INC-CA-2017TSO00027

PATIENT
  Age: 75 Year
  Sex: Female
  Weight: 61.8 kg

DRUGS (44)
  1. GLYCERIN                           /00200601/ [Concomitant]
     Active Substance: GLYCERIN
     Dosage: 2.7 G, SINGLE
     Route: 054
     Dates: start: 20161221, end: 20161221
  2. GRAVOL [Concomitant]
     Active Substance: DIMENHYDRINATE
     Indication: NAUSEA
     Dosage: 50 MG, Q6H PRN
     Route: 042
     Dates: start: 20161222, end: 20170106
  3. VERSED [Concomitant]
     Active Substance: MIDAZOLAM HYDROCHLORIDE
     Indication: MUSCULOSKELETAL STIFFNESS
     Dosage: 2 MG, Q2H PRN
     Route: 058
     Dates: start: 20161223, end: 20170106
  4. ZOFRAN [Concomitant]
     Active Substance: ONDANSETRON HYDROCHLORIDE
     Indication: NAUSEA
     Dosage: 8 MG, Q8H PRN
     Route: 048
  5. KCL [Concomitant]
     Active Substance: POTASSIUM CHLORIDE
     Indication: MINERAL SUPPLEMENTATION
     Dosage: 20 MEQ, BID
     Route: 042
     Dates: start: 20161228, end: 20161229
  6. K-DUR [Concomitant]
     Active Substance: POTASSIUM CHLORIDE
     Indication: MINERAL SUPPLEMENTATION
     Dosage: 20 MEQ, BID
     Route: 048
     Dates: start: 20161230, end: 20170102
  7. GLYCERIN                           /00200601/ [Concomitant]
     Active Substance: GLYCERIN
     Dosage: 2.7 G, QD
     Route: 054
     Dates: start: 20161228, end: 20170102
  8. GLYCERIN                           /00200601/ [Concomitant]
     Active Substance: GLYCERIN
     Dosage: 2.7 G, Q3J PRN
     Route: 054
     Dates: start: 20170102
  9. VITAMINS WITH MINERALS [Concomitant]
     Active Substance: MINERALS\VITAMINS
     Indication: PROPHYLAXIS
     Dosage: 1 DF, BID
     Route: 048
  10. DECADRON [Concomitant]
     Active Substance: DEXAMETHASONE
     Dosage: 2 MG, BID
     Route: 048
     Dates: start: 20170110, end: 20170112
  11. LAX-A-DAY [Concomitant]
     Indication: CONSTIPATION
     Dosage: 17 MG, QD
     Route: 048
     Dates: start: 20170102, end: 20170104
  12. LAX-A-DAY [Concomitant]
     Dosage: 17 MG, BID
     Route: 048
     Dates: start: 20161107, end: 20161223
  13. COLACE [Concomitant]
     Active Substance: DOCUSATE SODIUM
     Indication: CONSTIPATION
     Dosage: 200 MG, QD
     Route: 048
     Dates: start: 20170106
  14. ZOFRAN [Concomitant]
     Active Substance: ONDANSETRON HYDROCHLORIDE
     Dosage: 8 MG, Q8H PRN
     Route: 042
     Dates: start: 20161223
  15. SANDOSTATIN [Concomitant]
     Active Substance: OCTREOTIDE ACETATE
     Dosage: 50 ?G, TID
     Route: 058
     Dates: start: 20170103
  16. DECADRON [Concomitant]
     Active Substance: DEXAMETHASONE
     Indication: INTESTINAL OBSTRUCTION
     Dosage: 4 MG, TID
     Route: 058
     Dates: start: 20161223, end: 20161225
  17. DECADRON [Concomitant]
     Active Substance: DEXAMETHASONE
     Dosage: 4 MG, TID
     Route: 058
     Dates: start: 20170102, end: 20170106
  18. LOVENOX [Concomitant]
     Active Substance: ENOXAPARIN SODIUM
     Indication: THROMBOSIS PROPHYLAXIS
     Dosage: 100 MG, QD
     Route: 058
     Dates: start: 20170121
  19. GRAVOL [Concomitant]
     Active Substance: DIMENHYDRINATE
     Dosage: UNK
  20. DECADRON [Concomitant]
     Active Substance: DEXAMETHASONE
     Dosage: 4 MG, BID
     Route: 048
     Dates: start: 20170106, end: 20170109
  21. PANTOLOC                           /01263204/ [Concomitant]
     Active Substance: PANTOPRAZOLE SODIUM
     Indication: PAIN PROPHYLAXIS
     Dosage: 40 MG, QD
     Route: 042
     Dates: start: 20161222, end: 20161222
  22. SENOKOT [Concomitant]
     Active Substance: SENNOSIDES
     Indication: CONSTIPATION
     Dosage: 86 MG, QD PRN
     Route: 048
  23. GLYCERIN                           /00200601/ [Concomitant]
     Active Substance: GLYCERIN
     Indication: CONSTIPATION
     Dosage: 2.7 G, BID
     Route: 054
  24. FRAGMIN [Concomitant]
     Active Substance: DALTEPARIN SODIUM
     Indication: PROPHYLAXIS
     Dosage: 5000 UNITS, BID
     Route: 058
     Dates: start: 20161222, end: 20170106
  25. DULCOLAX (BISACODYL) [Concomitant]
     Active Substance: BISACODYL
     Indication: CONSTIPATION
     Dosage: 10 MG, SINGLE
     Route: 054
     Dates: start: 20161221, end: 20161221
  26. SANDOSTATIN [Concomitant]
     Active Substance: OCTREOTIDE ACETATE
     Dosage: 150 ?G, Q8H
     Route: 058
     Dates: start: 20161223, end: 20161225
  27. DECADRON [Concomitant]
     Active Substance: DEXAMETHASONE
     Dosage: 2 MG, QD
     Route: 048
     Dates: start: 20170113, end: 20170115
  28. NEXIUM [Concomitant]
     Active Substance: ESOMEPRAZOLE MAGNESIUM
     Indication: PAIN PROPHYLAXIS
     Dosage: 40 MG, QD
     Route: 048
     Dates: start: 20161226, end: 20161230
  29. FLEET                              /00103901/ [Concomitant]
     Indication: CONSTIPATION
     Dosage: 66.5 ML, SINGLE
     Route: 054
     Dates: start: 20161221, end: 20161221
  30. HALDOL [Concomitant]
     Active Substance: HALOPERIDOL
     Indication: NAUSEA
     Dosage: 0.5 MG, BID
     Route: 058
     Dates: start: 20161222, end: 20161223
  31. ATIVAN [Concomitant]
     Active Substance: LORAZEPAM
     Indication: ANXIETY
     Dosage: 1 ?G, HS PRN
     Route: 060
     Dates: start: 20161222
  32. VERSED [Concomitant]
     Active Substance: MIDAZOLAM HYDROCHLORIDE
     Indication: ANXIETY
  33. SANDOSTATIN [Concomitant]
     Active Substance: OCTREOTIDE ACETATE
     Dosage: 100 ?G, TID
     Dates: start: 20170102, end: 20170103
  34. PANTOLOC                           /01263204/ [Concomitant]
     Active Substance: PANTOPRAZOLE SODIUM
     Dosage: 40 MG, QD
     Route: 048
     Dates: start: 20161230
  35. HALDOL [Concomitant]
     Active Substance: HALOPERIDOL
     Dosage: 0.5 MG, Q4H PRN
     Route: 058
     Dates: start: 20161223, end: 20161231
  36. DILAUDID [Concomitant]
     Active Substance: HYDROMORPHONE HYDROCHLORIDE
     Indication: ABDOMINAL PAIN
     Dosage: 1 MG, Q3H PRN
     Route: 058
     Dates: start: 20161222, end: 20170106
  37. SANDOSTATIN [Concomitant]
     Active Substance: OCTREOTIDE ACETATE
     Indication: INTESTINAL OBSTRUCTION
     Dosage: 100 ?G, Q8H
     Route: 058
     Dates: start: 20161222, end: 20161223
  38. SANDOSTATIN [Concomitant]
     Active Substance: OCTREOTIDE ACETATE
     Dosage: 200 ?G, Q8H
     Route: 058
     Dates: start: 20161225, end: 20170102
  39. DECADRON [Concomitant]
     Active Substance: DEXAMETHASONE
     Dosage: 4 MG, QID
     Route: 058
     Dates: start: 20161225, end: 20170102
  40. KAYEXALATE [Concomitant]
     Active Substance: SODIUM POLYSTYRENE SULFONATE
     Indication: HYPERKALAEMIA
     Dosage: 15 MG, 2 DOSES Q3H
     Route: 048
     Dates: start: 20170106, end: 20170106
  41. NIRAPARIB [Suspect]
     Active Substance: NIRAPARIB
     Indication: NEOPLASM MALIGNANT
     Dosage: 300 MG, QD
     Route: 048
     Dates: start: 20161206, end: 20170125
  42. DULCOLAX (BISACODYL) [Concomitant]
     Active Substance: BISACODYL
     Dosage: 10 MG, Q3J PRN
     Route: 054
     Dates: start: 20170102
  43. LAX-A-DAY [Concomitant]
     Dosage: 34 MG, QD
     Route: 048
     Dates: start: 20170104
  44. BENYLIN                            /00715801/ [Concomitant]
     Indication: PRODUCT USED FOR UNKNOWN INDICATION
     Dosage: 5 ML, BID
     Route: 048
     Dates: start: 20170111, end: 20170119

REACTIONS (1)
  - Pancytopenia [Recovered/Resolved]

NARRATIVE: CASE EVENT DATE: 20170126
